FAERS Safety Report 5405031-0 (Version None)
Quarter: 2007Q3

REPORT INFORMATION
  Report Type: 
  Country: None (occurrence: None)
  Receive Date: 20070803
  Receipt Date: 20070725
  Transmission Date: 20080115
  Serious: Yes (Hospitalization)
  Sender: FDA-Public Use
  Company Number: CH-AVENTIS-200713740EU

PATIENT
  Age: 83 Year
  Sex: Female

DRUGS (3)
  1. FLUDEX                             /00340101/ [Suspect]
     Indication: DRUG USE FOR UNKNOWN INDICATION
     Route: 048
     Dates: end: 20060917
  2. FUROSEMIDE [Suspect]
     Dates: end: 20060917
  3. CARBAMAZEPINE [Suspect]

REACTIONS (8)
  - ATRIOVENTRICULAR BLOCK FIRST DEGREE [None]
  - DEHYDRATION [None]
  - HYPOKALAEMIA [None]
  - HYPONATRAEMIA [None]
  - NAUSEA [None]
  - SOMNOLENCE [None]
  - VERTIGO [None]
  - VOMITING [None]
